FAERS Safety Report 9188775 (Version 1)
Quarter: 2013Q1

REPORT INFORMATION
  Report Type: Spontaneous
  Country: AT (occurrence: AT)
  Receive Date: 20130326
  Receipt Date: 20130326
  Transmission Date: 20140127
  Serious: Yes (Hospitalization)
  Sender: FDA-Public Use
  Company Number: PHHY2013AT026670

PATIENT
  Age: 48 Year
  Sex: Female
  Weight: 67 kg

DRUGS (1)
  1. CLAVAMOX [Suspect]
     Indication: PYELONEPHRITIS
     Dosage: UNK UKN, UNK
     Dates: start: 20120530, end: 20120604

REACTIONS (5)
  - Feeling cold [Recovered/Resolved]
  - Oedema peripheral [Recovered/Resolved]
  - Drug eruption [Recovered/Resolved]
  - Rash pruritic [Recovered/Resolved]
  - Nausea [Recovered/Resolved]
